FAERS Safety Report 21656139 (Version 4)
Quarter: 2022Q4

REPORT INFORMATION
  Report Type: Spontaneous
  Country: GB (occurrence: GB)
  Receive Date: 20221129
  Receipt Date: 20221229
  Transmission Date: 20230113
  Serious: No
  Sender: FDA-Public Use
  Company Number: GB-PFIZER INC-PV202200105741

PATIENT
  Age: 10 Year
  Sex: Female

DRUGS (2)
  1. GENOTROPIN [Suspect]
     Active Substance: SOMATROPIN
     Indication: Turner^s syndrome
     Dosage: 0.9 MG, 1X/DAY
     Route: 058
  2. GENOTROPIN [Suspect]
     Active Substance: SOMATROPIN
     Dosage: 1.1 MG, DAILY
     Route: 058

REACTIONS (3)
  - Drug dose omission by device [Unknown]
  - Device operational issue [Unknown]
  - Product solubility abnormal [Unknown]
